FAERS Safety Report 8301391-1 (Version None)
Quarter: 2012Q2

REPORT INFORMATION
  Report Type: 
  Country: None (occurrence: None)
  Receive Date: 20120420
  Receipt Date: 20120405
  Transmission Date: 20120825
  Serious: Yes (Hospitalization)
  Sender: FDA-Public Use
  Company Number: US-ROCHE-1044363

PATIENT
  Sex: Female
  Weight: 93.4 kg

DRUGS (10)
  1. AMOXICILLIN [Concomitant]
     Dates: start: 20111206
  2. FLUTICASONE FUROATE [Concomitant]
     Dates: start: 20120106
  3. COPEGUS [Suspect]
     Indication: HEPATITIS C
     Route: 048
     Dates: start: 20111024
  4. VALACYCLOVIR HYDROCHLORIDE [Concomitant]
     Dates: start: 19950101
  5. GS 9451 (NS3 PROTEASE INHIBITOR) [Suspect]
     Indication: HEPATITIS C
     Route: 048
     Dates: start: 20111024
  6. FLUOXETINE [Concomitant]
     Dates: start: 19950101
  7. CLARITIN [Concomitant]
     Dates: start: 20110101
  8. PEGINTERFERON ALFA-2A [Suspect]
     Indication: HEPATITIS C
     Route: 058
     Dates: start: 20111121
  9. GS 5885 (HCV NS5A INHIBITOR) [Suspect]
     Indication: HEPATITIS C
     Route: 048
     Dates: start: 20111024
  10. IBUPROFEN [Concomitant]
     Dates: start: 20111012

REACTIONS (2)
  - URINARY TRACT INFECTION [None]
  - SEPSIS [None]
